FAERS Safety Report 18340013 (Version 1)
Quarter: 2020Q4

REPORT INFORMATION
  Report Type: Spontaneous
  Country: CL (occurrence: CL)
  Receive Date: 20201002
  Receipt Date: 20201002
  Transmission Date: 20210113
  Serious: Yes (Hospitalization)
  Sender: FDA-Public Use
  Company Number: CL-MYLANLABS-2020M1083732

PATIENT
  Sex: Male

DRUGS (4)
  1. LEPONEX [Suspect]
     Active Substance: CLOZAPINE
     Indication: PRODUCT USED FOR UNKNOWN INDICATION
     Dosage: 100 MILLIGRAM, QD
     Dates: start: 2003
  2. LORAZEPAM. [Concomitant]
     Active Substance: LORAZEPAM
     Dosage: 4 MILLIGRAM, QD 10 DAYS
     Route: 048
  3. OLANZAPINE. [Concomitant]
     Active Substance: OLANZAPINE
     Dosage: 20 MILLIGRAM, QD 5 DAYS
     Route: 030
  4. OLANZAPINE. [Concomitant]
     Active Substance: OLANZAPINE
     Dosage: 30 MILLIGRAM, QD 10 DAYS
     Route: 048

REACTIONS (3)
  - Mental disorder [Not Recovered/Not Resolved]
  - Intentional product use issue [Unknown]
  - Product dose omission issue [Unknown]
